FAERS Safety Report 4338097-X (Version None)
Quarter: 2004Q2

REPORT INFORMATION
  Report Type: 
  Country: None (occurrence: None)
  Receive Date: 20040407
  Receipt Date: 20040323
  Transmission Date: 20050107
  Serious: Yes (Other)
  Sender: FDA-Public Use
  Company Number: 221964

PATIENT
  Age: 55 Year
  Sex: Male
  Weight: 57.4 kg

DRUGS (2)
  1. NOVORAPID PENFILL 3 ML(NOVO RAPID PENFILL 3 ML) [Suspect]
     Indication: INSULIN-REQUIRING TYPE II DIABETES MELLITUS
     Dosage: UNK, SUBCUTANEOUS
     Route: 058
     Dates: start: 20020424
  2. HUMACART N [Concomitant]

REACTIONS (1)
  - WOLFF-PARKINSON-WHITE SYNDROME [None]
